FAERS Safety Report 9398390 (Version 1)
Quarter: 2013Q3

REPORT INFORMATION
  Report Type: Spontaneous
  Country: US (occurrence: US)
  Receive Date: 20130712
  Receipt Date: 20130712
  Transmission Date: 20140515
  Serious: No
  Sender: FDA-Public Use
  Company Number: US-GLAXOSMITHKLINE-A1014781A

PATIENT
  Age: 83 Year
  Sex: Female
  Weight: 60.9 kg

DRUGS (1)
  1. FLOVENT [Suspect]
     Indication: PRODUCT USED FOR UNKNOWN INDICATION
     Dosage: 110MCG UNKNOWN
     Route: 055
     Dates: start: 20100720

REACTIONS (3)
  - Stomatitis [Recovered/Resolved]
  - Oral disorder [Recovered/Resolved]
  - Oral candidiasis [Recovered/Resolved]
